FAERS Safety Report 10694982 (Version 3)
Quarter: 2015Q1

REPORT INFORMATION
  Report Type: Spontaneous
  Country: US (occurrence: US)
  Receive Date: 20150107
  Receipt Date: 20150303
  Transmission Date: 20150721
  Serious: No
  Sender: FDA-Public Use
  Company Number: US-009507513-1501USA001333

PATIENT
  Age: 24 Year
  Sex: Female
  Weight: 85.71 kg

DRUGS (2)
  1. NEXPLANON [Suspect]
     Active Substance: ETONOGESTREL
     Indication: CONTRACEPTION
     Dosage: 1 ROD FOR 3 YEARS
     Route: 059
     Dates: start: 20140916
  2. TOPIRAMATE. [Concomitant]
     Active Substance: TOPIRAMATE
     Dosage: UNK

REACTIONS (4)
  - Implant site erythema [Recovered/Resolved]
  - Device breakage [Not Recovered/Not Resolved]
  - Implant site irritation [Unknown]
  - Medical device complication [Unknown]

NARRATIVE: CASE EVENT DATE: 20141230
